FAERS Safety Report 11246766 (Version 1)
Quarter: 2015Q3

REPORT INFORMATION
  Report Type: Spontaneous
  Country: US (occurrence: US)
  Receive Date: 20150708
  Receipt Date: 20150708
  Transmission Date: 20151125
  Serious: Yes (Life-Threatening)
  Sender: FDA-Public Use
  Company Number: PHEH2015US013002

PATIENT
  Sex: Female

DRUGS (1)
  1. VIVELLE DOT [Suspect]
     Active Substance: ESTRADIOL
     Indication: PRODUCT USED FOR UNKNOWN INDICATION
     Dosage: UNK
     Route: 062
     Dates: end: 2011

REACTIONS (6)
  - Hot flush [Unknown]
  - Memory impairment [Unknown]
  - Night sweats [Unknown]
  - Depression [Unknown]
  - Feeling abnormal [Unknown]
  - Palpitations [Unknown]
